FAERS Safety Report 5015718-X (Version None)
Quarter: 2006Q2

REPORT INFORMATION
  Report Type: 
  Country: None (occurrence: None)
  Receive Date: 20060601
  Receipt Date: 20060521
  Transmission Date: 20061013
  Serious: Yes (Life-Threatening, Other)
  Sender: FDA-Public Use
  Company Number: JP-KINGPHARMUSA00001-K200600673

PATIENT
  Age: 32 Year
  Sex: Female

DRUGS (2)
  1. PITOCIN [Suspect]
  2. METHYLERGOMETRINE [Suspect]
     Route: 042

REACTIONS (4)
  - AGITATION [None]
  - ANAPHYLACTIC SHOCK [None]
  - BLOOD PRESSURE SYSTOLIC DECREASED [None]
  - DYSPNOEA [None]
